FAERS Safety Report 8824094 (Version 8)
Quarter: 2013Q3

REPORT INFORMATION
  Report Type: Spontaneous
  Country: US (occurrence: US)
  Receive Date: 20121003
  Receipt Date: 20130821
  Transmission Date: 20140515
  Serious: Yes (Hospitalization, Other)
  Sender: FDA-Public Use
  Company Number: US-009507513-1209USA010810

PATIENT
  Sex: Female
  Weight: 128.35 kg

DRUGS (10)
  1. VICTRELIS [Suspect]
     Indication: HEPATITIS C
     Dosage: 2400 MG
     Route: 048
     Dates: start: 20121024, end: 20130724
  2. REBETOL [Suspect]
     Indication: HEPATITIS C
     Dosage: 3 DF, BID
     Route: 048
     Dates: start: 20120910, end: 2012
  3. REBETOL [Suspect]
     Dosage: 2 IN THE MORNING AND ONE AT NIGHT
     Route: 048
     Dates: start: 2012, end: 2012
  4. REBETOL [Suspect]
     Dosage: 2 EVERY DAY
     Route: 048
  5. REBETOL [Suspect]
     Dosage: 1 EVERY DAY
     Route: 048
     Dates: end: 2013
  6. PEGASYS [Suspect]
     Indication: HEPATITIS C
     Dosage: UNK
     Dates: start: 20120910
  7. GABAPENTIN [Concomitant]
     Indication: PAIN
     Dosage: 300 MG, TID
     Route: 048
     Dates: start: 20130304
  8. LIPITOR [Concomitant]
     Indication: HYPERLIPIDAEMIA
     Dosage: 20 MG, UNK
     Route: 048
     Dates: start: 20130513
  9. VOLTAREN [Concomitant]
     Indication: PAIN
     Dosage: UNK, PRN
     Route: 061
     Dates: start: 20130607
  10. TYLENOL [Concomitant]
     Indication: PAIN
     Dosage: 650 MG, PRN, EXTRA STRENGTH
     Route: 048
     Dates: start: 20130318

REACTIONS (53)
  - Oedema [Unknown]
  - Upper respiratory tract infection [Unknown]
  - Dyspnoea [Unknown]
  - Dyspnoea [Unknown]
  - Renal failure chronic [Not Recovered/Not Resolved]
  - Upper respiratory tract infection [Unknown]
  - Polyuria [Unknown]
  - Somnolence [Unknown]
  - Abdominal pain [Unknown]
  - Nocturia [Unknown]
  - Chills [Unknown]
  - Nocturia [Unknown]
  - Cough [Unknown]
  - Headache [Unknown]
  - Headache [Unknown]
  - Hyperphagia [Unknown]
  - Nocturia [Unknown]
  - Dyspnoea [Unknown]
  - Headache [Unknown]
  - Psoriasis [Unknown]
  - Haemoglobin decreased [Unknown]
  - Haemoglobin decreased [Unknown]
  - Haemoglobin decreased [Unknown]
  - Haemoglobin decreased [Unknown]
  - Anaemia [Unknown]
  - Anaemia [Unknown]
  - Anaemia [Unknown]
  - Anaemia [Unknown]
  - Fatigue [Unknown]
  - Insomnia [Unknown]
  - Insomnia [Unknown]
  - Fatigue [Unknown]
  - Insomnia [Unknown]
  - Red blood cell count decreased [Unknown]
  - Asthenia [Unknown]
  - Red blood cell count decreased [Recovering/Resolving]
  - Fatigue [Unknown]
  - Dyspnoea [Unknown]
  - Oedema [Unknown]
  - Headache [Unknown]
  - Dysgeusia [Unknown]
  - Nasopharyngitis [Unknown]
  - Ventricular failure [Recovered/Resolved]
  - Gout [Not Recovered/Not Resolved]
  - Oedema peripheral [Recovering/Resolving]
  - Anaemia [Recovered/Resolved]
  - Anaemia [Recovered/Resolved]
  - Pulmonary hypertension [Recovered/Resolved]
  - Blood uric acid increased [Not Recovered/Not Resolved]
  - Anaemia [Unknown]
  - Haemoglobin decreased [Unknown]
  - Headache [Unknown]
  - Pain [Unknown]
